FAERS Safety Report 6108607-0 (Version None)
Quarter: 2009Q1

REPORT INFORMATION
  Report Type: 
  Country: None (occurrence: None)
  Receive Date: 20090309
  Receipt Date: 20090227
  Transmission Date: 20090719
  Serious: Yes (Other)
  Sender: FDA-Public Use
  Company Number: US-AMGEN-QUU332986

PATIENT
  Sex: Female

DRUGS (1)
  1. ENBREL [Suspect]
     Indication: PSORIATIC ARTHROPATHY
     Route: 058

REACTIONS (7)
  - BLOOD GLUCOSE INCREASED [None]
  - COUGH [None]
  - ERYTHEMA [None]
  - EYE INFECTION [None]
  - OEDEMA PERIPHERAL [None]
  - RASH PRURITIC [None]
  - THYROID DISORDER [None]
